FAERS Safety Report 5400186-6 (Version None)
Quarter: 2007Q3

REPORT INFORMATION
  Report Type: 
  Country: None (occurrence: None)
  Receive Date: 20070727
  Receipt Date: 20070727
  Transmission Date: 20080115
  Serious: Yes (Hospitalization)
  Sender: FDA-Public Use
  Company Number: None

PATIENT
  Sex: Male
  Weight: 81.2 kg

DRUGS (2)
  1. VINCRISTINE SULFATE [Suspect]
     Dosage: 2 MG
  2. DEXAMETHASONE 0.5MG TAB [Suspect]
     Dosage: 60 MG

REACTIONS (8)
  - ASTHENIA [None]
  - EMPHYSEMA [None]
  - FATIGUE [None]
  - LOBAR PNEUMONIA [None]
  - LUNG DISORDER [None]
  - PNEUMOTHORAX [None]
  - PROCEDURAL COMPLICATION [None]
  - PULMONARY MASS [None]
